FAERS Safety Report 5869623-7 (Version None)
Quarter: 2008Q3

REPORT INFORMATION
  Report Type: 
  Country: None (occurrence: None)
  Receive Date: 20080904
  Receipt Date: 20080314
  Transmission Date: 20090109
  Serious: No
  Sender: FDA-Public Use
  Company Number: US-KINGPHARMUSA00001-K200800328

PATIENT

DRUGS (1)
  1. CYTOMEL [Suspect]
     Indication: HYPOTHYROIDISM
     Dosage: 5 MCG, QD
     Route: 048
     Dates: start: 20070101

REACTIONS (2)
  - BLOOD LEAD INCREASED [None]
  - LABORATORY TEST ABNORMAL [None]
